FAERS Safety Report 17415581 (Version 2)
Quarter: 2020Q1

REPORT INFORMATION
  Report Type: Report from Study
  Country: ES (occurrence: ES)
  Receive Date: 20200213
  Receipt Date: 20200219
  Transmission Date: 20200409
  Serious: Yes (Other)
  Sender: FDA-Public Use
  Company Number: ES-GLAXOSMITHKLINE-ES2020GSK017266

PATIENT
  Age: 74 Year
  Sex: Female
  Weight: 58 kg

DRUGS (6)
  1. NIRAPARIB [Suspect]
     Active Substance: NIRAPARIB
     Indication: OVARIAN EPITHELIAL CANCER
     Dosage: 200 MG
     Route: 048
     Dates: start: 20191211, end: 20200121
  2. BLINDED PLACEBO [Suspect]
     Active Substance: INVESTIGATIONAL PRODUCT
     Indication: OVARIAN EPITHELIAL CANCER
     Dosage: 20 MG
     Route: 042
     Dates: start: 20191211, end: 20191230
  3. BLINDED NIRAPARIB [Suspect]
     Active Substance: NIRAPARIB
     Indication: OVARIAN EPITHELIAL CANCER
     Dosage: 20 MG
     Route: 042
     Dates: start: 20191211, end: 20191230
  4. BLINDED ATEZOLIZUMAB [Suspect]
     Active Substance: ATEZOLIZUMAB
     Indication: OVARIAN EPITHELIAL CANCER
     Dosage: 20 MG
     Route: 042
     Dates: start: 20191211, end: 20191230
  5. BLINDED DOXORUBICIN [Suspect]
     Active Substance: DOXORUBICIN
     Indication: OVARIAN EPITHELIAL CANCER
     Dosage: 20 MG
     Route: 042
     Dates: start: 20191211, end: 20191230
  6. ENALAPRIL [Concomitant]
     Active Substance: ENALAPRIL
     Indication: HYPERTENSION
     Dosage: 10 MG
     Route: 048

REACTIONS (2)
  - Condition aggravated [Not Recovered/Not Resolved]
  - Hypothyroidism [Not Recovered/Not Resolved]

NARRATIVE: CASE EVENT DATE: 20200121
